FAERS Safety Report 8300526 (Version 2)
Quarter: 2012Q4

REPORT INFORMATION
  Report Type: 
  Country: US (occurrence: US)
  Receive Date: 20111219
  Receipt Date: 20120919
  Transmission Date: 20130627
  Serious: Yes (Disabling, Other)
  Sender: FDA-Public Use
  Company Number: US-US-EMD SERONO, INC.-7096493

PATIENT
  Age: 33 None
  Sex: Female

DRUGS (5)
  1. REBIF [Suspect]
     Indication: MULTIPLE SCLEROSIS
     Route: 058
     Dates: start: 20100811
  2. TYLEONOL 3 [Suspect]
     Indication: PAIN
     Dates: start: 201109
  3. TYLEONOL 3 [Suspect]
     Indication: FOOT FRACTURE
  4. TYLENOL [Concomitant]
     Indication: PREMEDICATION
  5. MOTRIN [Concomitant]
     Indication: PREMEDICATION

REACTIONS (6)
  - Confusional state [Recovered/Resolved]
  - Hallucination [Recovered/Resolved]
  - Bedridden [Recovered/Resolved]
  - Foot fracture [Unknown]
  - Fall [Unknown]
  - Injection site erythema [Unknown]
